FAERS Safety Report 5869608-0 (Version None)
Quarter: 2008Q3

REPORT INFORMATION
  Report Type: 
  Country: None (occurrence: None)
  Receive Date: 20080904
  Receipt Date: 20080305
  Transmission Date: 20090109
  Serious: No
  Sender: FDA-Public Use
  Company Number: US-KINGPHARMUSA00001-K200800290

PATIENT

DRUGS (2)
  1. CYTOMEL [Suspect]
     Dosage: 5 MCG, QD
     Dates: start: 20080103, end: 20080201
  2. UNSPECIFIED HERBAL FORMULATIONS [Concomitant]

REACTIONS (3)
  - HYPERSENSITIVITY [None]
  - NASAL CONGESTION [None]
  - RASH [None]
